FAERS Safety Report 7519231-7 (Version None)
Quarter: 2011Q2

REPORT INFORMATION
  Report Type: 
  Country: None (occurrence: None)
  Receive Date: 20110602
  Receipt Date: 20110526
  Transmission Date: 20111010
  Serious: Yes (Hospitalization)
  Sender: FDA-Public Use
  Company Number: US-ROCHE-780021

PATIENT
  Age: 75 Year
  Sex: Female
  Weight: 81.4 kg

DRUGS (22)
  1. METOLAZONE [Suspect]
     Indication: CARDIAC FAILURE CONGESTIVE
     Route: 048
     Dates: start: 20110303, end: 20110319
  2. GABAPENTIN [Concomitant]
     Dates: start: 20110303
  3. POTASSIUM CHLORIDE [Concomitant]
     Dates: start: 20110303, end: 20110319
  4. TIOTROPIUM [Concomitant]
     Dates: start: 20110303
  5. ASPIRIN [Concomitant]
     Dates: start: 20110314
  6. METOPROLOL TARTRATE [Concomitant]
     Dates: start: 20110303
  7. NAPROXEN [Suspect]
     Indication: MUSCULOSKELETAL PAIN
     Route: 048
     Dates: start: 20110303, end: 20110318
  8. METFORMIN HCL [Concomitant]
     Dates: start: 20110303
  9. ROPINIROLE [Concomitant]
     Dates: start: 20110303
  10. HEPARIN [Concomitant]
     Dates: start: 20110314, end: 20110320
  11. BIVALIRUDINE [Concomitant]
  12. DILTIAZEM [Concomitant]
     Dates: start: 20110303, end: 20110315
  13. GLIPIZIDE [Concomitant]
     Dates: start: 20100303
  14. CLOPIDOGREL [Concomitant]
  15. CANGRELOR [Suspect]
     Indication: PERCUTANEOUS CORONARY INTERVENTION
     Dosage: FORM: BOLUS AND CAPSULE. ROUTE: ORAL AND INTRAVENOUS
     Route: 050
     Dates: start: 20110317, end: 20110317
  16. ALLOPURINOL [Concomitant]
     Dates: start: 20110303
  17. CLOPIDOGREL [Suspect]
     Indication: PERCUTANEOUS CORONARY INTERVENTION
     Dosage: FORM: BOLUS AND CAPSULE. ROUTE: ORAL AND INTRAVENOUS
     Route: 050
     Dates: start: 20110317, end: 20110317
  18. ALBUTEROL SULFATE AUTOHALER [Concomitant]
     Dates: start: 20110303
  19. SIMVASTATIN [Concomitant]
     Dates: start: 20110303
  20. WARFARIN SODIUM [Concomitant]
     Dates: start: 20110303
  21. TORSEMIDE [Suspect]
     Indication: CARDIAC FAILURE CONGESTIVE
     Route: 048
     Dates: start: 20110303, end: 20110319
  22. VISIPAQUE [Suspect]
     Dosage: FORM: DYE. FREQ: SINGLE
     Route: 042
     Dates: start: 20110317, end: 20110317

REACTIONS (5)
  - NAUSEA [None]
  - DIARRHOEA [None]
  - RENAL FAILURE ACUTE [None]
  - CHEST PAIN [None]
  - VOMITING [None]
